FAERS Safety Report 23312921 (Version 1)
Quarter: 2023Q4

REPORT INFORMATION
  Report Type: Spontaneous
  Country: JP (occurrence: JP)
  Receive Date: 20231219
  Receipt Date: 20231219
  Transmission Date: 20240109
  Serious: Yes (Death, Hospitalization, Other)
  Sender: FDA-Public Use
  Company Number: JP-DSJP-DSJ-2023-151497

PATIENT
  Age: 8 Decade
  Sex: Male
  Weight: 44.4 kg

DRUGS (1)
  1. EDOXABAN TOSYLATE [Suspect]
     Active Substance: EDOXABAN TOSYLATE
     Indication: Atrial fibrillation
     Dosage: UNK
     Route: 048

REACTIONS (6)
  - Gastric cancer [Unknown]
  - Melaena [Unknown]
  - Gastrointestinal haemorrhage [Unknown]
  - Acquired haemophilia [Unknown]
  - Pneumonia aspiration [Fatal]
  - Cardiac failure [Fatal]
